FAERS Safety Report 4535343-4 (Version None)
Quarter: 2004Q4

REPORT INFORMATION
  Report Type: 
  Country: None (occurrence: None)
  Receive Date: 20041214
  Receipt Date: 20040914
  Transmission Date: 20050328
  Serious: No
  Sender: FDA-Public Use
  Company Number: 2004235815US

PATIENT
  Age: 59 Year
  Sex: Female
  Weight: 71.7 kg

DRUGS (5)
  1. BEXTRA [Suspect]
     Indication: ARTHRITIS
     Dosage: 10 MG, QD
     Dates: start: 20040913, end: 20040913
  2. ATENOLOL [Concomitant]
  3. HYDROCHLOROTHIAZIDE [Concomitant]
  4. NEXIUM [Concomitant]
  5. ZOLOFT [Concomitant]

REACTIONS (3)
  - BRADYPHRENIA [None]
  - FATIGUE [None]
  - RESTLESSNESS [None]
